FAERS Safety Report 14773321 (Version 1)
Quarter: 2018Q2

REPORT INFORMATION
  Report Type: Spontaneous
  Country: US (occurrence: US)
  Receive Date: 20180411
  Receipt Date: 20180411
  Transmission Date: 20180711
  Serious: Yes (Disabling)
  Sender: FDA-Public Use
  Company Number: None

PATIENT
  Age: 37 Year
  Sex: Female
  Weight: 83.25 kg

DRUGS (8)
  1. MULTI-VITAMIN [Concomitant]
     Active Substance: .ALPHA.-TOCOPHEROL ACETATE, DL-\ASCORBIC ACID\CYANOCOBALAMIN\FLUORIDE ION\FOLIC ACID\NIACIN\PYRIDOXINE\RIBOFLAVIN\THIAMINE\VITAMIN A\VITAMIN D
  2. TYLENOL [Concomitant]
     Active Substance: ACETAMINOPHEN
  3. VITAMIN D [Concomitant]
     Active Substance: CHOLECALCIFEROL
  4. PEPPERMINT OIL [Concomitant]
     Active Substance: PEPPERMINT OIL
  5. VITAMIN E [Concomitant]
     Active Substance: .ALPHA.-TOCOPHEROL
  6. SPIRONOLACTONE. [Concomitant]
     Active Substance: SPIRONOLACTONE
  7. LUPRON DEPOT [Suspect]
     Active Substance: LEUPROLIDE ACETATE
     Indication: ENDOMETRIOSIS
     Dosage: ?          QUANTITY:1 DF DOSAGE FORM;?
     Route: 030
  8. ADDERALL [Concomitant]
     Active Substance: AMPHETAMINE ASPARTATE\AMPHETAMINE SULFATE\DEXTROAMPHETAMINE SACCHARATE\DEXTROAMPHETAMINE SULFATE

REACTIONS (29)
  - Bladder pain [None]
  - Alopecia [None]
  - Cholelithiasis [None]
  - Cystitis [None]
  - Speech disorder [None]
  - Muscular weakness [None]
  - Dysstasia [None]
  - Loss of employment [None]
  - Arthralgia [None]
  - Aphasia [None]
  - Fall [None]
  - Hyperacusis [None]
  - Photophobia [None]
  - Loss of personal independence in daily activities [None]
  - Tooth fracture [None]
  - Hypoaesthesia [None]
  - Dizziness [None]
  - Gastrointestinal disorder [None]
  - Toothache [None]
  - Paraesthesia [None]
  - Skin disorder [None]
  - Feeling abnormal [None]
  - Myalgia [None]
  - Gait disturbance [None]
  - Amnesia [None]
  - Tremor [None]
  - Dyskinesia [None]
  - Dysgraphia [None]
  - Musculoskeletal disorder [None]

NARRATIVE: CASE EVENT DATE: 20150101
